FAERS Safety Report 6702312-5 (Version None)
Quarter: 2010Q2

REPORT INFORMATION
  Report Type: 
  Country: None (occurrence: None)
  Receive Date: 20100429
  Receipt Date: 20100422
  Transmission Date: 20101027
  Serious: Yes (Other)
  Sender: FDA-Public Use
  Company Number: GB-PURDUE-GBR-2010-0006483

PATIENT
  Age: 64 Year
  Sex: Male

DRUGS (9)
  1. MORPHINE SULFATE [Suspect]
     Indication: ARTHRALGIA
  2. MORPHINE SULFATE [Suspect]
     Indication: NEURALGIA
  3. DICLOFENAC [Suspect]
     Indication: ARTHRALGIA
  4. GABAPENTIN [Suspect]
     Indication: PAIN
  5. ATENOLOL [Concomitant]
  6. DOXAZOSIN [Concomitant]
  7. LISINOPRIL [Concomitant]
  8. BENDROFLUAZIDE [Concomitant]
  9. SPIRONOLACTONE [Concomitant]

REACTIONS (6)
  - CARDIAC FAILURE [None]
  - CONSTIPATION [None]
  - DEHYDRATION [None]
  - DRUG INEFFECTIVE [None]
  - LYMPHOEDEMA [None]
  - PLEURAL EFFUSION [None]
